FAERS Safety Report 8531651 (Version 3)
Quarter: 2012Q4

REPORT INFORMATION
  Report Type: 
  Country: US (occurrence: US)
  Receive Date: 20120426
  Receipt Date: 20120928
  Transmission Date: 20130627
  Serious: Yes (Disabling, Other)
  Sender: FDA-Public Use
  Company Number: US-BAYER-2012-039104

PATIENT
  Age: 26 Year
  Sex: Female
  Weight: 68.03 kg

DRUGS (14)
  1. YASMIN [Suspect]
     Indication: DYSMENORRHOEA
     Dosage: UNK
     Dates: start: 200211, end: 20030130
  2. DIFFERIN [Concomitant]
     Dosage: 0.1 %, HS
     Dates: start: 20030129
  3. CLINDAMYCIN [Concomitant]
     Dosage: App 1 to 2 times a day
     Dates: start: 20030129
  4. PLAVIX [Concomitant]
  5. FLORINEF [Concomitant]
  6. LEXAPRO [Concomitant]
  7. ZOLOFT [Concomitant]
  8. PROZAC [Concomitant]
  9. DEPAKOTE [Concomitant]
  10. SEROQUEL [Concomitant]
  11. AMBIEN [Concomitant]
  12. WELLBUTRIN [Concomitant]
  13. CITALOPRAM [Concomitant]
  14. XANAX [Concomitant]

REACTIONS (18)
  - Cerebrovascular accident [None]
  - Suicidal ideation [None]
  - Pulmonary embolism [None]
  - Brain injury [None]
  - Cerebral thrombosis [None]
  - Emotional distress [None]
  - Pain [None]
  - General physical health deterioration [None]
  - Anxiety [None]
  - Injury [None]
  - Depression [None]
  - Night sweats [None]
  - Nightmare [None]
  - Syncope [None]
  - Insomnia [None]
  - Disturbance in attention [None]
  - Postural orthostatic tachycardia syndrome [None]
  - Weight increased [None]
